FAERS Safety Report 9519675 (Version 1)
Quarter: 2013Q3

REPORT INFORMATION
  Report Type: Spontaneous
  Country: US (occurrence: None)
  Receive Date: 20130911
  Receipt Date: 20130911
  Transmission Date: 20140515
  Serious: No
  Sender: FDA-Public Use
  Company Number: None

PATIENT
  Age: 55 Year
  Sex: Male

DRUGS (2)
  1. CYTOXAN [Suspect]
     Indication: PLASMA CELL MYELOMA
     Dates: start: 201309
  2. VELCADE MILLENNIUM [Suspect]
     Indication: PLASMA CELL MYELOMA
     Dates: start: 201306

REACTIONS (1)
  - Fatigue [None]
